FAERS Safety Report 7646969-3 (Version None)
Quarter: 2011Q3

REPORT INFORMATION
  Report Type: 
  Country: None (occurrence: None)
  Receive Date: 20110801
  Receipt Date: 20110719
  Transmission Date: 20111222
  Serious: Yes (Hospitalization, Other)
  Sender: FDA-Public Use
  Company Number: HU-ELI_LILLY_AND_COMPANY-HU201107002223

PATIENT
  Age: 77 Year
  Sex: Female

DRUGS (3)
  1. TRAMADOL HCL [Concomitant]
  2. FORTEO [Suspect]
     Indication: OSTEOPOROSIS
     Dosage: 20 UG, QD
     Route: 058
     Dates: start: 20100603, end: 20110623
  3. VITAMIN D [Concomitant]

REACTIONS (2)
  - NEPHROPATHY [None]
  - BLOOD CREATININE INCREASED [None]
